FAERS Safety Report 16574850 (Version 1)
Quarter: 2019Q3

REPORT INFORMATION
  Report Type: Spontaneous
  Country: US (occurrence: US)
  Receive Date: 20190715
  Receipt Date: 20190715
  Transmission Date: 20191004
  Serious: No
  Sender: FDA-Public Use
  Company Number: US-009507513-1906USA008663

PATIENT
  Age: 45 Year
  Sex: Female
  Weight: 81.18 kg

DRUGS (6)
  1. ALPRAZOLAM. [Concomitant]
     Active Substance: ALPRAZOLAM
  2. LACOSAMIDE. [Concomitant]
     Active Substance: LACOSAMIDE
  3. LAMICTAL [Concomitant]
     Active Substance: LAMOTRIGINE
  4. KEPPRA [Concomitant]
     Active Substance: LEVETIRACETAM
  5. NEXPLANON [Suspect]
     Active Substance: ETONOGESTREL
     Dosage: ROD
     Route: 059
     Dates: start: 20180412
  6. NEXPLANON [Suspect]
     Active Substance: ETONOGESTREL
     Indication: CONTRACEPTION
     Dosage: UNK
     Route: 059
     Dates: end: 2017

REACTIONS (2)
  - Complication of device removal [Recovered/Resolved]
  - Implant site pain [Not Recovered/Not Resolved]

NARRATIVE: CASE EVENT DATE: 2017
